FAERS Safety Report 7398879-7 (Version None)
Quarter: 2011Q2

REPORT INFORMATION
  Report Type: 
  Country: None (occurrence: None)
  Receive Date: 20110407
  Receipt Date: 20110324
  Transmission Date: 20111010
  Serious: Yes (Other)
  Sender: FDA-Public Use
  Company Number: JP-CELGENEUS-087-21880-11012836

PATIENT
  Sex: Female

DRUGS (8)
  1. REVLIMID [Suspect]
     Indication: MULTIPLE MYELOMA
     Dosage: 25 MILLIGRAM
     Route: 048
     Dates: start: 20101116, end: 20101117
  2. THYRADIN [Concomitant]
     Indication: THYROIDITIS CHRONIC
     Dosage: 50 MILLIGRAM
     Route: 048
     Dates: start: 20101116
  3. PARIET [Concomitant]
     Indication: PROPHYLAXIS
     Dosage: 10 MILLIGRAM
     Route: 048
     Dates: start: 20101116
  4. URSO 250 [Concomitant]
     Indication: CHRONIC HEPATITIS
     Dosage: 300 MILLIGRAM
     Route: 048
     Dates: start: 20101116
  5. DUROTEP [Concomitant]
     Route: 062
     Dates: start: 20101116
  6. ASPIRIN [Suspect]
     Indication: PROPHYLAXIS
     Dosage: 100 MILLIGRAM
     Route: 048
     Dates: start: 20101116
  7. NORVASC [Concomitant]
     Indication: HYPERTENSION
     Dosage: 2.5 MILLIGRAM
     Route: 048
     Dates: start: 20101116
  8. LENADEX [Suspect]
     Indication: MULTIPLE MYELOMA
     Dosage: 40 MILLIGRAM
     Route: 048
     Dates: start: 20101116, end: 20101116

REACTIONS (2)
  - GASTROINTESTINAL HAEMORRHAGE [None]
  - SHOCK HAEMORRHAGIC [None]
